FAERS Safety Report 23265627 (Version 1)
Quarter: 2023Q4

REPORT INFORMATION
  Report Type: Report from Study
  Country: US (occurrence: US)
  Receive Date: 20231206
  Receipt Date: 20231206
  Transmission Date: 20240110
  Serious: Yes (Other)
  Sender: FDA-Public Use
  Company Number: US-ABBVIE-5521888

PATIENT
  Age: 52 Year
  Sex: Female

DRUGS (1)
  1. HUMIRA [Suspect]
     Active Substance: ADALIMUMAB
     Indication: Product used for unknown indication
     Route: 058
     Dates: start: 20221208

REACTIONS (3)
  - Sleep apnoea syndrome [Not Recovered/Not Resolved]
  - Procedural pain [Recovering/Resolving]
  - Incision site pain [Unknown]

NARRATIVE: CASE EVENT DATE: 20231127
